FAERS Safety Report 11423261 (Version 2)
Quarter: 2015Q4

REPORT INFORMATION
  Report Type: Report from Study
  Country: CH (occurrence: CH)
  Receive Date: 20150827
  Receipt Date: 20151127
  Transmission Date: 20160304
  Serious: Yes (Other)
  Sender: FDA-Public Use
  Company Number: PHHY2013CH167030

PATIENT
  Age: 20 Year
  Sex: Female

DRUGS (9)
  1. SOM230 [Suspect]
     Active Substance: PASIREOTIDE
     Dosage: 40 MG
     Route: 065
     Dates: start: 201208
  2. CYCLACUR [Concomitant]
     Indication: SECONDARY HYPOGONADISM
     Route: 065
     Dates: start: 20120810
  3. SORTIS [Concomitant]
     Active Substance: ATORVASTATIN
     Indication: PRODUCT USED FOR UNKNOWN INDICATION
     Dosage: 20 MG, QD
     Route: 065
     Dates: start: 201210
  4. SOM230 [Suspect]
     Active Substance: PASIREOTIDE
     Dosage: 40 MG
     Route: 065
     Dates: start: 201307
  5. OESTROGEL//ESTRADIOL [Concomitant]
     Indication: PRODUCT USED FOR UNKNOWN INDICATION
     Dosage: UNK
     Route: 065
  6. SOM230 [Suspect]
     Active Substance: PASIREOTIDE
     Dosage: 60 MG, QMO
     Route: 065
     Dates: start: 201408
  7. SOM230 [Suspect]
     Active Substance: PASIREOTIDE
     Indication: ACROMEGALY
     Dosage: 20 MG
     Route: 065
     Dates: start: 20120701
  8. METFIN [Concomitant]
     Active Substance: METFORMIN HYDROCHLORIDE
     Indication: PRODUCT USED FOR UNKNOWN INDICATION
     Dosage: 1 G, BID
     Route: 065
     Dates: start: 201211
  9. EUTHYROX [Concomitant]
     Active Substance: LEVOTHYROXINE SODIUM
     Indication: PRODUCT USED FOR UNKNOWN INDICATION
     Route: 065
     Dates: start: 20141031

REACTIONS (3)
  - Insulin-like growth factor increased [Unknown]
  - Diabetes mellitus [Not Recovered/Not Resolved]
  - Glucose tolerance impaired [Unknown]

NARRATIVE: CASE EVENT DATE: 201210
